FAERS Safety Report 12424861 (Version 2)
Quarter: 2016Q2

REPORT INFORMATION
  Report Type: Report from Study
  Country: ES (occurrence: ES)
  Receive Date: 20160601
  Receipt Date: 20160607
  Transmission Date: 20160815
  Serious: Yes (Hospitalization, Other)
  Sender: FDA-Public Use
  Company Number: ES-PFIZER INC-2016279224

PATIENT
  Age: 30 Year
  Sex: Male

DRUGS (19)
  1. FUROSEMIDA CINFA [Interacting]
     Active Substance: FUROSEMIDE
     Dosage: 40 MG 1X/DAY
     Route: 048
     Dates: start: 20150427, end: 20150603
  2. LACTULOSE. [Concomitant]
     Active Substance: LACTULOSE
  3. FERROGLYCINE [Concomitant]
  4. SEGURIL [Concomitant]
     Active Substance: FUROSEMIDE
  5. MASTICAL D [Concomitant]
  6. AUXINA A+E [Concomitant]
  7. OMEPRAZOLE. [Concomitant]
     Active Substance: OMEPRAZOLE
  8. AZITHROMYCIN ANHYDROUS. [Concomitant]
     Active Substance: AZITHROMYCIN ANHYDROUS
  9. SYMBICORT [Concomitant]
     Active Substance: BUDESONIDE\FORMOTEROL FUMARATE DIHYDRATE
  10. EKLIRA [Concomitant]
     Active Substance: ACLIDINIUM BROMIDE
  11. FLUMIL /00082801/ [Concomitant]
     Active Substance: ACETYLCYSTEINE
  12. KONAKION [Concomitant]
     Active Substance: PHYTONADIONE
  13. TOBRAMYCIN. [Concomitant]
     Active Substance: TOBRAMYCIN
     Route: 055
  14. SALBUTAMOL [Concomitant]
     Active Substance: ALBUTEROL
  15. HYANEB [Concomitant]
  16. PROPANOLOL /00030001/ [Concomitant]
     Active Substance: PROPRANOLOL HYDROCHLORIDE
  17. ALDACTONE [Suspect]
     Active Substance: SPIRONOLACTONE
     Dosage: 100 MG, 1X/DAY
     Route: 048
     Dates: start: 20150427, end: 20150603
  18. KREON /00014701/ [Concomitant]
     Active Substance: PANCRELIPASE
  19. CODEISAN [Concomitant]

REACTIONS (2)
  - Drug interaction [Unknown]
  - Inappropriate antidiuretic hormone secretion [Unknown]

NARRATIVE: CASE EVENT DATE: 20150603
